FAERS Safety Report 14120300 (Version 1)
Quarter: 2017Q4

REPORT INFORMATION
  Report Type: Report from Study
  Country: US (occurrence: US)
  Receive Date: 20171024
  Receipt Date: 20171024
  Transmission Date: 20180321
  Serious: Yes (Death, Other)
  Sender: FDA-Public Use
  Company Number: US-ROCHE-2013622

PATIENT

DRUGS (8)
  1. RILOTUMUMAB [Suspect]
     Active Substance: RILOTUMUMAB
     Indication: ADENOCARCINOMA GASTRIC
     Dosage: GIVEN FOR 10 CYCLES
     Route: 042
  2. CISPLATIN. [Suspect]
     Active Substance: CISPLATIN
     Indication: OESOPHAGEAL ADENOCARCINOMA
  3. RILOTUMUMAB [Suspect]
     Active Substance: RILOTUMUMAB
     Indication: OESOPHAGEAL ADENOCARCINOMA
  4. CAPECITABINE. [Suspect]
     Active Substance: CAPECITABINE
     Indication: ADENOCARCINOMA GASTRIC
     Dosage: GIVEN FOR 10 CYCLES
     Route: 048
  5. EPIRUBICIN [Suspect]
     Active Substance: EPIRUBICIN
     Indication: ADENOCARCINOMA
     Dosage: GIVEN FOR 10 CYCLES
     Route: 042
  6. EPIRUBICIN [Suspect]
     Active Substance: EPIRUBICIN
     Indication: OESOPHAGEAL ADENOCARCINOMA
  7. CAPECITABINE. [Suspect]
     Active Substance: CAPECITABINE
     Indication: OESOPHAGEAL ADENOCARCINOMA
  8. CISPLATIN. [Suspect]
     Active Substance: CISPLATIN
     Indication: ADENOCARCINOMA GASTRIC
     Dosage: GIVEN FOR 10 CYCLES
     Route: 042

REACTIONS (99)
  - Death [Fatal]
  - Meningitis bacterial [Unknown]
  - Renal infarct [Unknown]
  - Dizziness [Unknown]
  - Peripheral sensory neuropathy [Unknown]
  - Atrial fibrillation [Unknown]
  - Ejection fraction decreased [Unknown]
  - Cystitis [Unknown]
  - Femur fracture [Unknown]
  - Gastrointestinal perforation [Unknown]
  - Microangiopathic haemolytic anaemia [Unknown]
  - Organ failure [Unknown]
  - Metabolic acidosis [Unknown]
  - Oesophageal perforation [Unknown]
  - Pulmonary thrombosis [Unknown]
  - Dry mouth [Unknown]
  - Myalgia [Unknown]
  - Extravasation [Unknown]
  - Hypoacusis [Unknown]
  - Pneumonia aspiration [Unknown]
  - Blood glucose increased [Unknown]
  - Cardiac failure acute [Unknown]
  - Cerebral venous thrombosis [Unknown]
  - Gastrointestinal fistula [Unknown]
  - Humerus fracture [Unknown]
  - Iron deficiency anaemia [Unknown]
  - Lymph gland infection [Unknown]
  - Blood bilirubin increased [Unknown]
  - Malaise [Unknown]
  - Cachexia [Unknown]
  - Haematemesis [Unknown]
  - Gastritis [Unknown]
  - Mood altered [Unknown]
  - Arterial thrombosis [Unknown]
  - Balanoposthitis [Unknown]
  - Jaundice cholestatic [Unknown]
  - Jejunal perforation [Unknown]
  - Oesophageal obstruction [Unknown]
  - Pancreatitis acute [Unknown]
  - Respiratory failure [Unknown]
  - Shock haemorrhagic [Unknown]
  - Proctalgia [Unknown]
  - Vena cava thrombosis [Unknown]
  - Lymphopenia [Unknown]
  - Blood albumin decreased [Unknown]
  - Gastrointestinal inflammation [Unknown]
  - Hypertriglyceridaemia [Unknown]
  - Troponin I increased [Unknown]
  - Brain death [Fatal]
  - Pulmonary oedema [Unknown]
  - Gamma-glutamyltransferase increased [Unknown]
  - Presyncope [Unknown]
  - Blood potassium decreased [Unknown]
  - Toothache [Unknown]
  - Cardiomyopathy [Unknown]
  - Electrolyte imbalance [Unknown]
  - Skin reaction [Unknown]
  - Ventricular tachycardia [Unknown]
  - Acute psychosis [Unknown]
  - Hemiparesis [Unknown]
  - Lung infection [Unknown]
  - Right ventricular dysfunction [Unknown]
  - Lung abscess [Unknown]
  - Mucosal infection [Unknown]
  - Psoriasis [Unknown]
  - Abdominal distension [Unknown]
  - Influenza [Unknown]
  - Vertigo [Unknown]
  - Cardiac failure [Unknown]
  - Amnesia [Unknown]
  - Biliary sepsis [Unknown]
  - Blood bilirubin abnormal [Unknown]
  - Enteritis infectious [Unknown]
  - Femoral neck fracture [Unknown]
  - Nail toxicity [Unknown]
  - Parkinson^s disease [Unknown]
  - Peritonitis bacterial [Unknown]
  - Systemic mycosis [Unknown]
  - Headache [Unknown]
  - Paraesthesia [Unknown]
  - Cerebral infarction [Unknown]
  - Duodenal obstruction [Unknown]
  - Gastrointestinal infection [Unknown]
  - Haemoptysis [Unknown]
  - Peripheral arterial occlusive disease [Unknown]
  - Cervical vertebral fracture [Unknown]
  - Erysipelas [Unknown]
  - Hyperglycaemic hyperosmolar nonketotic syndrome [Unknown]
  - Myocardial infarction [Unknown]
  - Nail bed infection [Unknown]
  - Neutrophil count abnormal [Unknown]
  - Staphylococcal sepsis [Unknown]
  - Perforation bile duct [Unknown]
  - Pneumonia bacterial [Unknown]
  - Nephropathy toxic [Unknown]
  - Haematotoxicity [Unknown]
  - Portal hypertension [Unknown]
  - Renal colic [Unknown]
  - Speech disorder [Unknown]
